FAERS Safety Report 5406999-9 (Version None)
Quarter: 2007Q3

REPORT INFORMATION
  Report Type: 
  Country: None (occurrence: None)
  Receive Date: 20070807
  Receipt Date: 20070806
  Transmission Date: 20080115
  Serious: Yes (Life-Threatening)
  Sender: FDA-Public Use
  Company Number: US-BRISTOL-MYERS SQUIBB COMPANY-13868351

PATIENT
  Age: 71 Year
  Sex: Male
  Weight: 84 kg

DRUGS (17)
  1. CETUXIMAB [Suspect]
     Indication: SQUAMOUS CELL CARCINOMA
     Dates: start: 20070705, end: 20070705
  2. CISPLATIN [Suspect]
     Indication: SQUAMOUS CELL CARCINOMA
     Dates: start: 20070705, end: 20070705
  3. TAXOTERE [Suspect]
     Indication: SQUAMOUS CELL CARCINOMA
     Dates: start: 20070705, end: 20070705
  4. FLUOROURACIL [Suspect]
     Indication: SQUAMOUS CELL CARCINOMA
     Dates: start: 20070705, end: 20070705
  5. CIPRO [Concomitant]
     Route: 048
  6. OXYCONTIN [Concomitant]
     Indication: PAIN
  7. REGLAN [Concomitant]
     Route: 048
  8. ATIVAN [Concomitant]
     Indication: NAUSEA
     Route: 048
  9. ACCUPRIL [Concomitant]
  10. PRILOSEC [Concomitant]
     Route: 048
  11. PRILOSEC [Concomitant]
     Route: 048
  12. DEXAMETHASONE 0.5MG TAB [Concomitant]
  13. ZOFRAN [Concomitant]
     Route: 048
  14. ASPIRIN [Concomitant]
     Route: 048
  15. LIPITOR [Concomitant]
     Route: 048
  16. BENZOQUIN [Concomitant]
  17. ALKALOL [Concomitant]

REACTIONS (1)
  - FEBRILE NEUTROPENIA [None]
